FAERS Safety Report 19217525 (Version 1)
Quarter: 2021Q2

REPORT INFORMATION
  Report Type: Spontaneous
  Country: JP (occurrence: JP)
  Receive Date: 20210505
  Receipt Date: 20210505
  Transmission Date: 20210717
  Serious: Yes (Death, Other)
  Sender: FDA-Public Use
  Company Number: JP-TEVA-2021-JP-1907020

PATIENT
  Age: 24 Year
  Sex: Female

DRUGS (8)
  1. TRABECTEDIN [Suspect]
     Active Substance: TRABECTEDIN
     Indication: EWING-LIKE SARCOMA
     Route: 065
     Dates: start: 201906, end: 201907
  2. ETOPOSIDE. [Suspect]
     Active Substance: ETOPOSIDE
     Indication: EWING-LIKE SARCOMA
     Dosage: OVER THE FIVE DAYS EVERY THREE WEEKS
     Route: 065
     Dates: start: 201812, end: 201906
  3. VINCRISTINE [Suspect]
     Active Substance: VINCRISTINE
     Indication: EWING-LIKE SARCOMA
     Route: 065
     Dates: start: 201806, end: 201812
  4. CYCLOPHOSPHAMIDE. [Suspect]
     Active Substance: CYCLOPHOSPHAMIDE
     Indication: EWING-LIKE SARCOMA
     Route: 065
     Dates: start: 201806, end: 201812
  5. DOXORUBICIN [Suspect]
     Active Substance: DOXORUBICIN
     Indication: ANAPLASTIC LARGE-CELL LYMPHOMA
     Route: 065
  6. ACTINOMYCIN D [Suspect]
     Active Substance: DACTINOMYCIN
     Indication: EWING-LIKE SARCOMA
     Route: 065
     Dates: start: 201809, end: 201812
  7. DOXORUBICIN [Suspect]
     Active Substance: DOXORUBICIN
     Indication: EWING-LIKE SARCOMA
     Dosage: OFF LABEL TREATMENT FOR EWING?LIKE SARCOMA
     Route: 065
     Dates: start: 201806, end: 201809
  8. IFOSFAMIDE. [Suspect]
     Active Substance: IFOSFAMIDE
     Indication: EWING-LIKE SARCOMA
     Dosage: FOR FIVE DAYS, EVERY THREE WEEK
     Route: 065
     Dates: start: 201812, end: 201906

REACTIONS (4)
  - Ewing-like sarcoma [Unknown]
  - Off label use [Unknown]
  - Decreased appetite [Unknown]
  - Impaired quality of life [Unknown]
